FAERS Safety Report 5163744-2 (Version None)
Quarter: 2006Q4

REPORT INFORMATION
  Report Type: 
  Country: None (occurrence: None)
  Receive Date: 20061127
  Receipt Date: 20061127
  Transmission Date: 20070319
  Serious: Yes (Life-Threatening, Other)
  Sender: FDA-Public Use
  Company Number: None

PATIENT
  Sex: Female
  Weight: 69.8539 kg

DRUGS (1)
  1. RISPERDAL [Suspect]
     Indication: BIPOLAR II DISORDER
     Dosage: 1MG 1X AT PM PO
     Route: 048
     Dates: start: 20021008, end: 20040820

REACTIONS (23)
  - AGGRESSION [None]
  - AMNESIA [None]
  - BURNING SENSATION [None]
  - CATATONIA [None]
  - COGNITIVE DISORDER [None]
  - DELUSION [None]
  - DYSCALCULIA [None]
  - DYSKINESIA [None]
  - EXPRESSIVE LANGUAGE DISORDER [None]
  - FEELING ABNORMAL [None]
  - GINGIVAL DISORDER [None]
  - HALLUCINATION [None]
  - ILL-DEFINED DISORDER [None]
  - INSOMNIA [None]
  - LIBIDO DECREASED [None]
  - MENSTRUATION IRREGULAR [None]
  - NERVOUS SYSTEM DISORDER [None]
  - PSYCHOTIC DISORDER [None]
  - SELF INJURIOUS BEHAVIOUR [None]
  - THINKING ABNORMAL [None]
  - TOOTH DISORDER [None]
  - VISION BLURRED [None]
  - WEIGHT INCREASED [None]
